FAERS Safety Report 9788025 (Version 1)
Quarter: 2013Q4

REPORT INFORMATION
  Report Type: Report from Study
  Country: JP (occurrence: JP)
  Receive Date: 20131230
  Receipt Date: 20131230
  Transmission Date: 20140711
  Serious: Yes (Other)
  Sender: FDA-Public Use
  Company Number: JP-B.I. PHARMACEUTICALS,INC./RIDGEFIELD-2013-BI-44036GD

PATIENT
  Age: 64 Year
  Sex: Male

DRUGS (2)
  1. PRADAXA [Suspect]
     Indication: ATRIAL FIBRILLATION
     Dosage: 220 MG
     Route: 048
     Dates: start: 20110802
  2. PLAVIX [Concomitant]
     Dosage: 75 MG
     Route: 065

REACTIONS (2)
  - Cerebellar infarction [Unknown]
  - Dizziness [Unknown]
